FAERS Safety Report 22160814 (Version 1)
Quarter: 2023Q1

REPORT INFORMATION
  Report Type: Spontaneous
  Country: US (occurrence: US)
  Receive Date: 20230331
  Receipt Date: 20230331
  Transmission Date: 20230418
  Serious: No
  Sender: FDA-Public Use
  Company Number: US-GSK-US2023AMR046181

PATIENT
  Sex: Female

DRUGS (1)
  1. WELLBUTRIN [Suspect]
     Active Substance: BUPROPION HYDROCHLORIDE
     Indication: Depression
     Dosage: UNK

REACTIONS (5)
  - Memory impairment [Unknown]
  - Malaise [Unknown]
  - Headache [Unknown]
  - Irritability [Unknown]
  - Chromaturia [Recovered/Resolved]
